FAERS Safety Report 19210161 (Version 1)
Quarter: 2021Q2

REPORT INFORMATION
  Report Type: Other
  Country: JP (occurrence: JP)
  Receive Date: 20210504
  Receipt Date: 20210504
  Transmission Date: 20210717
  Serious: Yes (Other)
  Sender: FDA-Public Use
  Company Number: JP-ROCHE-2823550

PATIENT
  Age: 50 Year
  Sex: Female

DRUGS (13)
  1. VINCRISTINE [Suspect]
     Active Substance: VINCRISTINE
     Indication: ACUTE LYMPHOCYTIC LEUKAEMIA
     Route: 065
  2. CYCLOPHOSPHAMIDE. [Suspect]
     Active Substance: CYCLOPHOSPHAMIDE
     Indication: ACUTE LYMPHOCYTIC LEUKAEMIA
     Route: 065
  3. DOXORUBICIN [Suspect]
     Active Substance: DOXORUBICIN
     Indication: ACUTE LYMPHOCYTIC LEUKAEMIA
     Route: 065
  4. METHOTREXATE. [Suspect]
     Active Substance: METHOTREXATE
     Indication: PROPHYLAXIS AGAINST GRAFT VERSUS HOST DISEASE
     Route: 065
  5. CYTARABINE. [Suspect]
     Active Substance: CYTARABINE
     Indication: ACUTE LYMPHOCYTIC LEUKAEMIA
     Route: 065
  6. MYCOPHENOLATE MOFETIL. [Suspect]
     Active Substance: MYCOPHENOLATE MOFETIL
     Indication: PROPHYLAXIS AGAINST GRAFT VERSUS HOST DISEASE
     Route: 065
  7. OMEPRAZOLE. [Concomitant]
     Active Substance: OMEPRAZOLE
  8. ITRACONAZOLE. [Concomitant]
     Active Substance: ITRACONAZOLE
  9. METHOTREXATE. [Suspect]
     Active Substance: METHOTREXATE
     Indication: ACUTE LYMPHOCYTIC LEUKAEMIA
  10. SULFAMETHOXAZOLE/TRIMETHOPRIM [Concomitant]
     Active Substance: SULFAMETHOXAZOLE\TRIMETHOPRIM
  11. MAGNESIUM OXIDE. [Concomitant]
     Active Substance: MAGNESIUM OXIDE
  12. DEXAMETHASONE. [Suspect]
     Active Substance: DEXAMETHASONE
     Indication: ACUTE LYMPHOCYTIC LEUKAEMIA
     Route: 065
  13. AMLODIPINE BESILATE [Concomitant]
     Active Substance: AMLODIPINE BESYLATE

REACTIONS (1)
  - Cardiac failure acute [Unknown]

NARRATIVE: CASE EVENT DATE: 201812
